FAERS Safety Report 5420935-0 (Version None)
Quarter: 2007Q3

REPORT INFORMATION
  Report Type: 
  Country: None (occurrence: None)
  Receive Date: 20070817
  Receipt Date: 20070817
  Transmission Date: 20080115
  Serious: Yes (Other)
  Sender: FDA-Public Use
  Company Number: None

PATIENT
  Sex: Male

DRUGS (2)
  1. HUMIRA [Suspect]
     Indication: RHEUMATOID ARTHRITIS
     Dosage: 40MG EVERY OTHER WEEK SQ
     Route: 058
     Dates: start: 20070620
  2. ENBREL [Suspect]
     Indication: RHEUMATOID ARTHRITIS
     Dosage: 25ML-0.8ML- TWICE WEEKLY SQ
     Route: 058
     Dates: start: 20070502

REACTIONS (5)
  - INJECTION SITE IRRITATION [None]
  - INJECTION SITE PAIN [None]
  - INJECTION SITE REACTION [None]
  - LIVER DISORDER [None]
  - RASH [None]
